FAERS Safety Report 9742670 (Version 1)
Quarter: 2013Q4

REPORT INFORMATION
  Report Type: Spontaneous
  Country: US (occurrence: US)
  Receive Date: 20131210
  Receipt Date: 20131210
  Transmission Date: 20140711
  Serious: No
  Sender: FDA-Public Use
  Company Number: US-GILEAD-2009-0025396

PATIENT
  Sex: Female
  Weight: 69.85 kg

DRUGS (14)
  1. LETAIRIS [Suspect]
     Indication: PULMONARY ARTERIAL HYPERTENSION
     Route: 048
     Dates: start: 20080411
  2. ZOCOR [Concomitant]
  3. LASIX [Concomitant]
  4. COUMADIN [Concomitant]
  5. GLUCOSAMINE/CHONDROITIN [Concomitant]
  6. ATACAND [Concomitant]
  7. PRILOSEC [Concomitant]
  8. ASPIRIN [Concomitant]
  9. DAILY MULTIVITAMIN [Concomitant]
  10. NITROQUICK [Concomitant]
  11. CLONIDINE [Concomitant]
  12. CARDIZEM CD [Concomitant]
  13. POTASSIUM CHLORIDE [Concomitant]
  14. VITAMIN D 1000 UNITS [Concomitant]

REACTIONS (2)
  - Nasal congestion [Unknown]
  - Constipation [Unknown]
